FAERS Safety Report 7557205-0 (Version None)
Quarter: 2011Q2

REPORT INFORMATION
  Report Type: 
  Country: None (occurrence: None)
  Receive Date: 20110620
  Receipt Date: 20100625
  Transmission Date: 20111010
  Serious: No
  Sender: FDA-Public Use
  Company Number: US-MYLANLABS-2010S1011464

PATIENT
  Age: 81 Year
  Sex: Female

DRUGS (4)
  1. SINGULAIR [Concomitant]
  2. SPIRIVA [Concomitant]
  3. PERFOROMIST [Suspect]
     Indication: EMPHYSEMA
  4. ADVAIR DISKUS 100/50 [Concomitant]

REACTIONS (3)
  - LIP SWELLING [None]
  - TONGUE OEDEMA [None]
  - FEELING ABNORMAL [None]
